FAERS Safety Report 24291158 (Version 1)
Quarter: 2024Q3

REPORT INFORMATION
  Report Type: Spontaneous
  Country: US (occurrence: US)
  Receive Date: 20240906
  Receipt Date: 20240906
  Transmission Date: 20241016
  Serious: Yes (Death, Hospitalization)
  Sender: ASTELLAS
  Company Number: US-ROCHE-10000070706

PATIENT
  Age: 44 Year
  Sex: Female
  Weight: 95 kg

DRUGS (3)
  1. TARCEVA [Suspect]
     Active Substance: ERLOTINIB HYDROCHLORIDE
     Indication: Non-small cell lung cancer metastatic
     Route: 065
  2. SORAFENIB [Suspect]
     Active Substance: SORAFENIB
     Indication: Non-small cell lung cancer metastatic
     Route: 065
  3. ETOMIDATE [Concomitant]
     Active Substance: ETOMIDATE
     Indication: Product used for unknown indication
     Route: 065

REACTIONS (10)
  - Cardio-respiratory arrest [Fatal]
  - Oropharyngeal pain [Fatal]
  - Asthenia [Fatal]
  - Pulmonary mass [Fatal]
  - Decreased appetite [Fatal]
  - Confusional state [Fatal]
  - Mental status changes [Fatal]
  - Vomiting [Fatal]
  - Electrolyte imbalance [Fatal]
  - Cough [Fatal]

NARRATIVE: CASE EVENT DATE: 20081031
